FAERS Safety Report 7515540-6 (Version None)
Quarter: 2011Q2

REPORT INFORMATION
  Report Type: 
  Country: None (occurrence: None)
  Receive Date: 20110601
  Receipt Date: 20100712
  Transmission Date: 20111010
  Serious: Yes (Other)
  Sender: FDA-Public Use
  Company Number: US-PFIZER INC-2010040507

PATIENT
  Sex: Female

DRUGS (2)
  1. CHANTIX [Suspect]
     Indication: SMOKING CESSATION THERAPY
     Dosage: UNK
     Dates: start: 20070901, end: 20071201
  2. PROPOXYPHENE HYDROCHLORIDE [Concomitant]
     Indication: PAIN
     Dosage: UNK
     Dates: start: 20040101, end: 20080101

REACTIONS (2)
  - DEPRESSION [None]
  - ANXIETY [None]
